FAERS Safety Report 16353499 (Version 1)
Quarter: 2019Q2

REPORT INFORMATION
  Report Type: Report from Study
  Country: DE (occurrence: DE)
  Receive Date: 20190524
  Receipt Date: 20190524
  Transmission Date: 20190711
  Serious: Yes (Hospitalization, Other)
  Sender: FDA-Public Use
  Company Number: DE-PFIZER INC-2019215723

PATIENT
  Age: 70 Year
  Sex: Female
  Weight: 50 kg

DRUGS (36)
  1. FLUOROURACIL. [Suspect]
     Active Substance: FLUOROURACIL
     Dosage: 2616 MG, CYCLIC (EVERY 2 WEEKS)
     Route: 041
     Dates: start: 20151123, end: 20151125
  2. FLUOROURACIL. [Suspect]
     Active Substance: FLUOROURACIL
     Dosage: 477 MG, CYCLIC ( EVERY 2 WEEKS)
     Route: 040
     Dates: start: 20151207, end: 20160229
  3. MCP [Concomitant]
     Active Substance: METOCLOPRAMIDE HYDROCHLORIDE
     Dosage: 10 MG, AS NEEDED
     Route: 048
     Dates: start: 20151123
  4. KALINOR [CITRIC ACID;POTASSIUM BICARBONATE;POTASSIUM CITRATE] [Concomitant]
     Active Substance: CITRIC ACID MONOHYDRATE\POTASSIUM BICARBONATE\POTASSIUM CITRATE
     Indication: HYPOKALAEMIA
     Dosage: 40 MMOL, 1X/DAY
     Route: 048
     Dates: start: 20151207, end: 20151207
  5. ONDANSETRON [Concomitant]
     Active Substance: ONDANSETRON
     Indication: NAUSEA
     Dosage: 8 MG, CYCLIC
     Route: 042
     Dates: start: 20151123, end: 20151123
  6. IRINOTECAN HCL [Suspect]
     Active Substance: IRINOTECAN HYDROCHLORIDE
     Indication: COLON CANCER METASTATIC
     Dosage: 214.65 MG, CYCLIC (EVERY 2 WEEKS)
     Route: 042
     Dates: start: 20151207, end: 20160229
  7. MCP [Concomitant]
     Active Substance: METOCLOPRAMIDE HYDROCHLORIDE
     Indication: VOMITING
     Dosage: 10 MG, UNK
     Route: 042
     Dates: start: 20160330, end: 20160408
  8. OMEPRAZOL [OMEPRAZOLE] [Concomitant]
     Active Substance: OMEPRAZOLE
     Dosage: 40 MG, 1X/DAY
     Route: 048
     Dates: start: 20160418
  9. CLEXANE [Concomitant]
     Active Substance: ENOXAPARIN SODIUM
     Dosage: 40 MG, 1X/DAY
     Route: 058
     Dates: start: 20160331, end: 20160419
  10. MACROGOL [Concomitant]
     Active Substance: POLYETHYLENE GLYCOLS
     Indication: FAECES HARD
     Dosage: 13 G, UNK
     Route: 048
     Dates: start: 20160104
  11. BEVACIZUMAB. [Suspect]
     Active Substance: BEVACIZUMAB
     Dosage: 850 MG, CYCLIC (EVERY 2 WEEKS)
     Route: 042
     Dates: start: 20151123, end: 20160329
  12. FLUOROURACIL. [Suspect]
     Active Substance: FLUOROURACIL
     Indication: COLON CANCER METASTATIC
     Dosage: 1908 MG, UNK
     Route: 042
     Dates: start: 20160329, end: 20160330
  13. DEXAMETHASON [DEXAMETHASONE] [Concomitant]
     Active Substance: DEXAMETHASONE
     Indication: NAUSEA
  14. ZOMETA [Concomitant]
     Active Substance: ZOLEDRONIC ACID
     Indication: METASTASES TO BONE
     Dosage: 4 MG, CYCLIC (EVERY 4 WEEKS)
     Route: 042
     Dates: start: 20151123
  15. BEVACIZUMAB. [Suspect]
     Active Substance: BEVACIZUMAB
     Indication: COLON CANCER METASTATIC
     Dosage: 255 MG, CYCLIC (EVERY 2 WEEKS)
     Route: 042
     Dates: start: 20160201
  16. NOVALGIN (METAMIZOLE SODIUM) [Concomitant]
     Active Substance: METAMIZOLE SODIUM
     Indication: PAIN
     Dosage: 30 GTT, UNK
     Route: 048
     Dates: start: 20151207
  17. ONDANSETRON [Concomitant]
     Active Substance: ONDANSETRON
     Indication: VOMITING
     Dosage: 8 MG, UNK (PER CYCLE)
     Route: 042
     Dates: start: 20151124, end: 20151127
  18. OXALIPLATIN. [Suspect]
     Active Substance: OXALIPLATIN
     Indication: COLORECTAL CANCER
     Dosage: 135.15 MG, CYCLIC
     Route: 042
     Dates: start: 20160329
  19. BEVACIZUMAB. [Suspect]
     Active Substance: BEVACIZUMAB
     Dosage: 255 MG, CYCLIC (EVERY 2 WEEKS)
     Route: 042
     Dates: start: 20151221
  20. FOLINIC ACID [Concomitant]
     Active Substance: LEUCOVORIN
     Dosage: 436 MG, CYCLIC (EVERY 2 WEEKS)
     Route: 042
     Dates: start: 20151123, end: 20151123
  21. DEXAMETHASON [DEXAMETHASONE] [Concomitant]
     Active Substance: DEXAMETHASONE
     Indication: VOMITING
     Dosage: 8 MG, UNK (PER CYCLE)
     Route: 042
     Dates: start: 20151123
  22. OMEPRAZOL [OMEPRAZOLE] [Concomitant]
     Active Substance: OMEPRAZOLE
     Indication: GASTRITIS
     Dosage: 40 MG, 1X/DAY
     Route: 048
     Dates: start: 20151026, end: 20160330
  23. IRINOTECAN HCL [Suspect]
     Active Substance: IRINOTECAN HYDROCHLORIDE
     Dosage: 196.2 MG, CYCLIC (EVERY 2 WEEKS)
     Route: 042
     Dates: start: 20151123, end: 20151123
  24. BEVACIZUMAB. [Suspect]
     Active Substance: BEVACIZUMAB
     Dosage: 5 UNK, CYCLIC (EVERY 2 WEEKS)
     Route: 042
     Dates: start: 201512
  25. FLUOROURACIL. [Suspect]
     Active Substance: FLUOROURACIL
     Dosage: 436 MG, CYCLIC (EVERY 2 WEEKS)
     Route: 040
  26. NOVALGIN (METAMIZOLE SODIUM) [Concomitant]
     Active Substance: METAMIZOLE SODIUM
     Dosage: 30 GTT, 1X/DAY
     Route: 048
     Dates: start: 20151026, end: 20151207
  27. MCP [Concomitant]
     Active Substance: METOCLOPRAMIDE HYDROCHLORIDE
     Dosage: 30 MG, 1X/DAY
     Route: 042
     Dates: start: 20151124, end: 20151127
  28. OMEPRAZOL [OMEPRAZOLE] [Concomitant]
     Active Substance: OMEPRAZOLE
     Indication: VOMITING
     Dosage: 80 MG, 1X/DAY
     Route: 048
     Dates: start: 20160330, end: 20160418
  29. ASPIRIN. [Concomitant]
     Active Substance: ASPIRIN
     Indication: CEREBROVASCULAR ACCIDENT PROPHYLAXIS
     Dosage: 100 MG, 1X/DAY
     Route: 048
     Dates: start: 20151123
  30. CLEXANE [Concomitant]
     Active Substance: ENOXAPARIN SODIUM
     Indication: THROMBOSIS PROPHYLAXIS
     Dosage: 40 MG, 1X/DAY
     Route: 058
     Dates: start: 20151026, end: 20151204
  31. CEFUROXIM [CEFUROXIME] [Concomitant]
     Dosage: 500 MG, 1X/DAY
     Route: 048
     Dates: start: 20151127, end: 20151202
  32. OXALIPLATIN. [Suspect]
     Active Substance: OXALIPLATIN
     Dosage: 135.15 MG, CYCLIC
     Route: 042
     Dates: start: 20160314
  33. MCP [Concomitant]
     Active Substance: METOCLOPRAMIDE HYDROCHLORIDE
     Indication: NAUSEA
     Dosage: 10 MG, UNK
     Route: 042
     Dates: start: 20160408
  34. NIFEDIPIN [Concomitant]
     Active Substance: NIFEDIPINE
     Indication: HYPERTENSION
     Dosage: 10 MG, 1X/DAY
     Route: 048
     Dates: start: 20151221, end: 20151221
  35. FLUOROURACIL. [Suspect]
     Active Substance: FLUOROURACIL
     Dosage: 2862 MG, CYCLIC
     Route: 041
     Dates: start: 20151207, end: 20160302
  36. FOLINIC ACID [Concomitant]
     Active Substance: LEUCOVORIN
     Indication: COLON CANCER METASTATIC
     Dosage: 636 MG, CYCLIC (EVERY 2 WEEKS)
     Route: 042
     Dates: start: 20151207, end: 20160329

REACTIONS (13)
  - Stress cardiomyopathy [Recovering/Resolving]
  - Nausea [Recovered/Resolved]
  - Nausea [Unknown]
  - Vomiting [Unknown]
  - Febrile infection [Recovering/Resolving]
  - Pyrexia [Unknown]
  - Pneumonia [Recovered/Resolved]
  - Urosepsis [Recovered/Resolved]
  - General physical health deterioration [Unknown]
  - Overdose [Unknown]
  - Cardiac failure [Recovering/Resolving]
  - Vomiting [Recovered/Resolved]
  - Hypertension [Recovered/Resolved]

NARRATIVE: CASE EVENT DATE: 20151123
